FAERS Safety Report 19378877 (Version 2)
Quarter: 2021Q3

REPORT INFORMATION
  Report Type: Spontaneous
  Country: US (occurrence: US)
  Receive Date: 20210606
  Receipt Date: 20210729
  Transmission Date: 20211014
  Serious: No
  Sender: FDA-Public Use
  Company Number: US-SA-2021SA184496

PATIENT
  Age: 30 Year
  Sex: Male

DRUGS (9)
  1. DUPIXENT [Suspect]
     Active Substance: DUPILUMAB
     Dosage: 300 MG, QOW
     Route: 058
     Dates: start: 202105
  2. LATUDA [Concomitant]
     Active Substance: LURASIDONE HYDROCHLORIDE
  3. SERTRALINE [Concomitant]
     Active Substance: SERTRALINE HYDROCHLORIDE
  4. BUPROPION HCL [Concomitant]
     Active Substance: BUPROPION HYDROCHLORIDE
  5. ZOLOFT [Concomitant]
     Active Substance: SERTRALINE HYDROCHLORIDE
  6. DUPIXENT [Suspect]
     Active Substance: DUPILUMAB
     Indication: ECZEMA
     Dosage: 600 MG, 1X
     Route: 058
     Dates: start: 20210513, end: 20210513
  7. LITHIUM CARBONATE. [Concomitant]
     Active Substance: LITHIUM CARBONATE
  8. LORAZEPAM. [Concomitant]
     Active Substance: LORAZEPAM
  9. VYVANSE [Concomitant]
     Active Substance: LISDEXAMFETAMINE DIMESYLATE

REACTIONS (2)
  - Sleep disorder [Unknown]
  - Dry eye [Not Recovered/Not Resolved]

NARRATIVE: CASE EVENT DATE: 2021
